FAERS Safety Report 26107091 (Version 1)
Quarter: 2025Q4

REPORT INFORMATION
  Report Type: Report from Study
  Country: CA (occurrence: CA)
  Receive Date: 20251201
  Receipt Date: 20251201
  Transmission Date: 20260117
  Serious: Yes (Other)
  Sender: ABBVIE
  Company Number: CA-ABBVIE-6566537

PATIENT
  Age: 59 Year
  Sex: Female
  Weight: 78 kg

DRUGS (2)
  1. RINVOQ [Suspect]
     Active Substance: UPADACITINIB
     Indication: Crohn^s disease
     Route: 048
     Dates: end: 2025
  2. PREDNISONE [Concomitant]
     Active Substance: PREDNISONE
     Indication: Product used for unknown indication
     Dates: start: 2025

REACTIONS (15)
  - Systemic lupus erythematosus [Unknown]
  - Disability [Unknown]
  - Fall [Unknown]
  - Sternal fracture [Unknown]
  - Dyspnoea [Unknown]
  - Musculoskeletal disorder [Unknown]
  - Inflammation [Unknown]
  - Muscle strain [Unknown]
  - Pneumonia [Unknown]
  - Sputum discoloured [Not Recovered/Not Resolved]
  - Haemoptysis [Not Recovered/Not Resolved]
  - Plicated tongue [Unknown]
  - Musculoskeletal chest pain [Unknown]
  - Malaise [Unknown]
  - Arthralgia [Unknown]

NARRATIVE: CASE EVENT DATE: 20250101
